FAERS Safety Report 7675297-5 (Version None)
Quarter: 2011Q3

REPORT INFORMATION
  Report Type: 
  Country: None (occurrence: None)
  Receive Date: 20110810
  Receipt Date: 20110729
  Transmission Date: 20111222
  Serious: Yes (Hospitalization)
  Sender: FDA-Public Use
  Company Number: US-MYLANLABS-2011S1016033

PATIENT
  Age: 15 Year
  Sex: Female

DRUGS (1)
  1. AMNESTEEM [Suspect]

REACTIONS (4)
  - BLOOD CREATINE PHOSPHOKINASE INCREASED [None]
  - ASTHENIA [None]
  - DEHYDRATION [None]
  - MYALGIA [None]
